FAERS Safety Report 25529610 (Version 1)
Quarter: 2025Q3

REPORT INFORMATION
  Report Type: Spontaneous
  Country: EU (occurrence: EU)
  Receive Date: 20250708
  Receipt Date: 20250708
  Transmission Date: 20251021
  Serious: Yes (Hospitalization)
  Sender: BIOVITRUM
  Company Number: None

PATIENT
  Age: 57 Year
  Sex: Female
  Weight: 88 kg

DRUGS (1)
  1. KINERET [Suspect]
     Active Substance: ANAKINRA
     Indication: Pericarditis
     Route: 058
     Dates: start: 20230113

REACTIONS (1)
  - Endometrial neoplasm [Not Recovered/Not Resolved]

NARRATIVE: CASE EVENT DATE: 20250407
